FAERS Safety Report 8300474-X (Version None)
Quarter: 2012Q2

REPORT INFORMATION
  Report Type: 
  Country: None (occurrence: None)
  Receive Date: 20120417
  Receipt Date: 20120402
  Transmission Date: 20120825
  Serious: Yes (Hospitalization, Other)
  Sender: FDA-Public Use
  Company Number: AUR-APL-2012-01722

PATIENT
  Age: 30 Year
  Sex: Male

DRUGS (4)
  1. SERTRALINE HYDROCHLORIDE [Suspect]
     Indication: PRODUCT USED FOR UNKNOWN INDICATION
     Dosage: (50 MG, 1 D), UNKNOWN
  2. CLONAZEPAM [Concomitant]
  3. METOCLOPRAMIDE [Suspect]
     Indication: NAUSEA
     Dosage: 20 MG (10 MG, 2 IN 1 D), UNKNOWN
  4. METOCLOPRAMIDE [Suspect]
     Indication: VOMITING
     Dosage: 20 MG (10 MG, 2 IN 1 D), UNKNOWN

REACTIONS (16)
  - SUICIDAL IDEATION [None]
  - MORBID THOUGHTS [None]
  - RESTLESSNESS [None]
  - INSOMNIA [None]
  - VIOLENCE-RELATED SYMPTOM [None]
  - DIARRHOEA [None]
  - BLOOD PRESSURE INCREASED [None]
  - SELF-INJURIOUS IDEATION [None]
  - HOMICIDAL IDEATION [None]
  - TACHYPHRENIA [None]
  - APPENDICITIS [None]
  - DEPRESSION [None]
  - ANXIETY [None]
  - BLOOD GLUCOSE INCREASED [None]
  - ALANINE AMINOTRANSFERASE INCREASED [None]
  - NAUSEA [None]
